FAERS Safety Report 9524730 (Version 2)
Quarter: 2013Q4

REPORT INFORMATION
  Report Type: Spontaneous
  Country: VE (occurrence: VE)
  Receive Date: 20130916
  Receipt Date: 20131018
  Transmission Date: 20140711
  Serious: Yes (Hospitalization)
  Sender: FDA-Public Use
  Company Number: PHHY2013VE101883

PATIENT
  Age: 84 Year
  Sex: Male

DRUGS (2)
  1. DIOVAN HCT [Suspect]
     Indication: HYPERTENSION
     Dosage: 1 DF (80 MG VALS AND 12.5 MG HCTZ), DAILY
     Route: 048
  2. RIVOTRIL [Concomitant]
     Indication: INSOMNIA
     Dosage: 2 MG, DAILY

REACTIONS (6)
  - Mobility decreased [Recovered/Resolved]
  - Anaemia [Recovering/Resolving]
  - Asthenia [Recovering/Resolving]
  - Dizziness [Recovering/Resolving]
  - Insomnia [Recovering/Resolving]
  - Fall [Recovered/Resolved]
